FAERS Safety Report 5614567-9 (Version None)
Quarter: 2008Q1

REPORT INFORMATION
  Report Type: 
  Country: None (occurrence: None)
  Receive Date: 20080205
  Receipt Date: 20080110
  Transmission Date: 20080703
  Serious: No
  Sender: FDA-Public Use
  Company Number: US-BOEHRINGER INGELHEIM GMBH, GERMANY-2007-BP-25333BP

PATIENT
  Sex: Female

DRUGS (15)
  1. SPIRIVA [Suspect]
     Indication: CHRONIC OBSTRUCTIVE PULMONARY DISEASE
     Dates: start: 20040101
  2. NEURONTIN [Concomitant]
  3. WYGESIC [Concomitant]
  4. FOSAMAX [Concomitant]
  5. GUAIFEN + PSE [Concomitant]
  6. ALBUTEROL [Concomitant]
  7. IPRATROPIUM BROMIDE [Concomitant]
  8. COMBIVENT [Concomitant]
  9. FLEXERIL [Concomitant]
  10. BENTYL [Concomitant]
  11. WELLBUTRIN SR [Concomitant]
  12. SKELAXIN [Concomitant]
  13. IMITREX [Concomitant]
  14. IMITREX [Concomitant]
  15. ULTRAM ER [Concomitant]

REACTIONS (2)
  - DRUG INEFFECTIVE [None]
  - DYSPNOEA [None]
